FAERS Safety Report 14897410 (Version 3)
Quarter: 2018Q4

REPORT INFORMATION
  Report Type: Report from Study
  Country: CA (occurrence: CA)
  Receive Date: 20180515
  Receipt Date: 20181203
  Transmission Date: 20190204
  Serious: Yes (Other)
  Sender: FDA-Public Use
  Company Number: CA-GLAXOSMITHKLINE-CA2018GSK085464

PATIENT
  Sex: Female

DRUGS (2)
  1. FLUTICASONE PROPIONATE+SALMETEROL XINAFOATE [Suspect]
     Active Substance: FLUTICASONE PROPIONATE\SALMETEROL XINAFOATE
     Indication: PRODUCT USED FOR UNKNOWN INDICATION
     Dosage: UNK
  2. VENTOLIN [Suspect]
     Active Substance: ALBUTEROL SULFATE
     Indication: PRODUCT USED FOR UNKNOWN INDICATION
     Dosage: UNK

REACTIONS (13)
  - Anal incontinence [Unknown]
  - Wheezing [Unknown]
  - Impaired quality of life [Unknown]
  - Polyneuropathy [Unknown]
  - Asthma [Unknown]
  - Type 1 diabetes mellitus [Unknown]
  - Intestinal prolapse [Unknown]
  - Depression [Unknown]
  - Dyspnoea [Unknown]
  - Fibromyalgia [Unknown]
  - Urinary incontinence [Unknown]
  - Sleep disorder [Unknown]
  - Loss of personal independence in daily activities [Unknown]

NARRATIVE: CASE EVENT DATE: 2018
